FAERS Safety Report 5614879-9 (Version None)
Quarter: 2008Q1

REPORT INFORMATION
  Report Type: 
  Country: None (occurrence: None)
  Receive Date: 20080131
  Receipt Date: 20080122
  Transmission Date: 20080703
  Serious: Yes (Other)
  Sender: FDA-Public Use
  Company Number: 2008AP000267

PATIENT
  Age: 42 Year
  Sex: Female

DRUGS (8)
  1. PAROXETINE HCL [Suspect]
     Dosage: 20 MG;PO;QD; 30 MG;PO;QD; 20 MG;PO;QD; PO; 10 MG;PO;QD; ORAL_SOL;PO
     Dates: end: 19980101
  2. PAROXETINE HCL [Suspect]
     Dosage: 20 MG;PO;QD; 30 MG;PO;QD; 20 MG;PO;QD; PO; 10 MG;PO;QD; ORAL_SOL;PO
     Dates: start: 19960902
  3. PAROXETINE HCL [Suspect]
     Dosage: 20 MG;PO;QD; 30 MG;PO;QD; 20 MG;PO;QD; PO; 10 MG;PO;QD; ORAL_SOL;PO
     Dates: start: 19970908
  4. PAROXETINE HCL [Suspect]
     Dosage: 20 MG;PO;QD; 30 MG;PO;QD; 20 MG;PO;QD; PO; 10 MG;PO;QD; ORAL_SOL;PO
     Dates: start: 19980513
  5. PAROXETINE HCL [Suspect]
     Dosage: 20 MG;PO;QD; 30 MG;PO;QD; 20 MG;PO;QD; PO; 10 MG;PO;QD; ORAL_SOL;PO
     Dates: start: 20041018
  6. LEVOTHYROXINE SODIUM [Concomitant]
  7. ESTRADIOL VALERATE (ESTRADIOL VALERATE) [Concomitant]
  8. ESTRADIOL [Concomitant]

REACTIONS (1)
  - DRUG WITHDRAWAL SYNDROME [None]
